FAERS Safety Report 24165712 (Version 2)
Quarter: 2025Q2

REPORT INFORMATION
  Report Type: Spontaneous
  Country: US (occurrence: US)
  Receive Date: 20240802
  Receipt Date: 20250403
  Transmission Date: 20250716
  Serious: No
  Sender: ACCORD
  Company Number: US-Accord-417692

PATIENT
  Age: 48 Year
  Sex: Female

DRUGS (5)
  1. CARBOPLATIN [Suspect]
     Active Substance: CARBOPLATIN
     Indication: Breast cancer
     Dosage: NO. OF CYCLE: 6
     Dates: start: 20210907, end: 20211228
  2. DOCETAXEL [Suspect]
     Active Substance: DOCETAXEL
     Indication: Breast cancer
     Dosage: DOCETAXEL INJECTION CONCENTRATE; NO. OF CYCLE: 6
     Dates: start: 20210907, end: 20211228
  3. PERJETA [Suspect]
     Active Substance: PERTUZUMAB
     Indication: Breast cancer
     Dosage: NO. OF CYCLE: 6
     Dates: start: 20210907, end: 20211228
  4. HERCEPTIN [Suspect]
     Active Substance: TRASTUZUMAB
     Indication: Breast cancer
     Dosage: NO. OF CYCLE: 6
     Dates: start: 20210907, end: 20211228
  5. HERCEPTIN [Suspect]
     Active Substance: TRASTUZUMAB
     Indication: Breast cancer

REACTIONS (2)
  - Lacrimal structure injury [Not Recovered/Not Resolved]
  - Off label use [Unknown]

NARRATIVE: CASE EVENT DATE: 20211001
